FAERS Safety Report 4660074-X (Version None)
Quarter: 2005Q2

REPORT INFORMATION
  Report Type: 
  Country: None (occurrence: None)
  Receive Date: 20050512
  Receipt Date: 20050225
  Transmission Date: 20051028
  Serious: No
  Sender: FDA-Public Use
  Company Number: US-GLAXOSMITHKLINE-A0547355A

PATIENT
  Age: 48 Year
  Sex: Female

DRUGS (4)
  1. RELAFEN [Suspect]
     Indication: OSTEOARTHRITIS
     Dosage: 750MG TWICE PER DAY
     Route: 048
     Dates: start: 20050128
  2. LAMISIL [Concomitant]
  3. ANTACID TAB [Concomitant]
     Route: 065
  4. VITAMINS [Concomitant]

REACTIONS (3)
  - HAIR TEXTURE ABNORMAL [None]
  - STOMACH DISCOMFORT [None]
  - THERAPEUTIC RESPONSE DECREASED [None]
